FAERS Safety Report 7897489-2 (Version None)
Quarter: 2011Q4

REPORT INFORMATION
  Report Type: 
  Country: None (occurrence: None)
  Receive Date: 20111028
  Receipt Date: 20110705
  Transmission Date: 20120403
  Serious: Yes (Other)
  Sender: FDA-Public Use
  Company Number: PHHY2011US59985

PATIENT
  Age: 19 Year
  Sex: Male
  Weight: 102 kg

DRUGS (2)
  1. TRILEPTAL [Suspect]
     Indication: CONVULSION
     Dosage: 20 MG, BID
  2. TRILEPTAL [Suspect]
     Indication: CONVULSION
     Dosage: 300 MG, BID

REACTIONS (6)
  - HYPERSENSITIVITY [None]
  - PAIN [None]
  - CHEST PAIN [None]
  - HEPATIC ENZYME INCREASED [None]
  - CONVULSION [None]
  - MALAISE [None]
